FAERS Safety Report 5229030-7 (Version None)
Quarter: 2007Q1

REPORT INFORMATION
  Report Type: 
  Country: None (occurrence: None)
  Receive Date: 20061201
  Receipt Date: 20060914
  Transmission Date: 20070707
  Serious: No
  Sender: FDA-Public Use
  Company Number: US200609004431

PATIENT
  Sex: Male

DRUGS (3)
  1. CYMBALTA [Suspect]
     Dosage: SEE IMAGE
     Dates: start: 20060301, end: 20060101
  2. CYMBALTA [Suspect]
     Dosage: SEE IMAGE
     Dates: start: 20060101
  3. PRILOSEC [Concomitant]

REACTIONS (2)
  - ABDOMINAL PAIN UPPER [None]
  - SEXUAL DYSFUNCTION [None]
